FAERS Safety Report 9158325 (Version 1)
Quarter: 2013Q1

REPORT INFORMATION
  Report Type: Spontaneous
  Country: PT (occurrence: PT)
  Receive Date: 20130312
  Receipt Date: 20130312
  Transmission Date: 20140127
  Serious: Yes (Death, Other)
  Sender: FDA-Public Use
  Company Number: PT-JHP PHARMACEUTICALS, LLC-JHP201300119

PATIENT
  Age: 80 Year
  Sex: Male

DRUGS (5)
  1. ADRENALIN [Suspect]
     Indication: HAEMOSTASIS
     Dosage: 10 ML OF 1:10,000 INJECTION
  2. POLIDOCANOL [Suspect]
     Indication: HAEMOSTASIS
     Dosage: 5 ML @ 1% INJECTION
  3. WARFARIN [Concomitant]
     Indication: ATRIAL FIBRILLATION
  4. NSAIDS [Concomitant]
     Indication: OSTEOARTHRITIS
  5. PROTON PUMP INHIBITORS [Concomitant]
     Route: 042

REACTIONS (2)
  - Haematoma [Not Recovered/Not Resolved]
  - Pancreatitis [Fatal]
